FAERS Safety Report 9743018 (Version 1)
Quarter: 2013Q4

REPORT INFORMATION
  Report Type: Spontaneous
  Country: US (occurrence: US)
  Receive Date: 20131210
  Receipt Date: 20131210
  Transmission Date: 20140711
  Serious: No
  Sender: FDA-Public Use
  Company Number: US-TEVA-384866USA

PATIENT
  Sex: Female

DRUGS (1)
  1. BUDESONIDE [Suspect]

REACTIONS (2)
  - Dyspnoea [Unknown]
  - Wrong technique in drug usage process [Unknown]
